FAERS Safety Report 8470419-0 (Version None)
Quarter: 2012Q2

REPORT INFORMATION
  Report Type: 
  Country: None (occurrence: None)
  Receive Date: 20120620
  Receipt Date: 20120611
  Transmission Date: 20120825
  Serious: Yes (Other)
  Sender: FDA-Public Use
  Company Number: KAD201206-000342

PATIENT
  Age: 51 Year
  Sex: Female

DRUGS (1)
  1. RIBAVIRIN [Suspect]

REACTIONS (5)
  - INJECTION SITE ERYTHEMA [None]
  - FATIGUE [None]
  - HERPES ZOSTER [None]
  - RASH [None]
  - INFLUENZA LIKE ILLNESS [None]
